FAERS Safety Report 24834527 (Version 1)
Quarter: 2025Q1

REPORT INFORMATION
  Report Type: Spontaneous
  Country: KR (occurrence: KR)
  Receive Date: 20250113
  Receipt Date: 20250113
  Transmission Date: 20250408
  Serious: Yes (Other)
  Sender: SANOFI AVENTIS
  Company Number: KR-SA-2025SA008985

PATIENT
  Age: 50 Year
  Sex: Male

DRUGS (1)
  1. DUPIXENT [Suspect]
     Active Substance: DUPILUMAB
     Indication: Dermatitis atopic
     Dosage: 300 MG, QOW
     Dates: start: 202410, end: 202501

REACTIONS (4)
  - Cutaneous T-cell lymphoma [Unknown]
  - Furuncle [Unknown]
  - Facial pain [Unknown]
  - Rash [Unknown]

NARRATIVE: CASE EVENT DATE: 20241201
